FAERS Safety Report 8018731-3 (Version None)
Quarter: 2012Q1

REPORT INFORMATION
  Report Type: 
  Country: None (occurrence: None)
  Receive Date: 20120103
  Receipt Date: 20120103
  Transmission Date: 20120608
  Serious: No
  Sender: FDA-Public Use
  Company Number: None

PATIENT
  Age: 58 Year
  Sex: Female
  Weight: 70.306 kg

DRUGS (2)
  1. PENNSAID [Suspect]
     Indication: MUSCULOSKELETAL PAIN
     Dosage: APPROX 30 DROPS PER SHOULDER
     Route: 061
     Dates: start: 20111213, end: 20111224
  2. PENNSAID [Suspect]
     Indication: INFLAMMATION
     Dosage: APPROX 30 DROPS PER SHOULDER
     Route: 061
     Dates: start: 20111213, end: 20111224

REACTIONS (9)
  - APPLICATION SITE PAIN [None]
  - HEADACHE [None]
  - BACK PAIN [None]
  - HYPERSOMNIA [None]
  - PAIN IN EXTREMITY [None]
  - NAUSEA [None]
  - FATIGUE [None]
  - INFLUENZA LIKE ILLNESS [None]
  - DIZZINESS [None]
